FAERS Safety Report 16618575 (Version 1)
Quarter: 2019Q3

REPORT INFORMATION
  Report Type: Report from Study
  Country: CA (occurrence: CA)
  Receive Date: 20190723
  Receipt Date: 20190723
  Transmission Date: 20191004
  Serious: Yes (Other)
  Sender: FDA-Public Use
  Company Number: CA-HLSUS-2019-CA-000426

PATIENT
  Age: 58 Year
  Sex: Male
  Weight: 105 kg

DRUGS (5)
  1. QUETIAPINE. [Concomitant]
     Active Substance: QUETIAPINE
     Dosage: XR 400 MG DAILY
     Route: 048
  2. CLOZARIL [Suspect]
     Active Substance: CLOZAPINE
     Dosage: 100 MG DAILY
     Route: 048
     Dates: start: 20010426, end: 20190410
  3. MIRTAZAPINE. [Concomitant]
     Active Substance: MIRTAZAPINE
     Indication: BIPOLAR DISORDER
     Dosage: 45 MG DAILY
     Route: 048
  4. GEMFIBROZIL. [Concomitant]
     Active Substance: GEMFIBROZIL
     Indication: HYPERTENSION
     Dosage: 100 MG DAILY
     Route: 048
  5. PAROXETINE. [Concomitant]
     Active Substance: PAROXETINE
     Dosage: 30 MG DAILY
     Route: 048

REACTIONS (4)
  - Balance disorder [Unknown]
  - Psychotic disorder [Unknown]
  - Loss of consciousness [Unknown]
  - Delirium [Unknown]

NARRATIVE: CASE EVENT DATE: 201902
